FAERS Safety Report 6137077-1 (Version None)
Quarter: 2009Q1

REPORT INFORMATION
  Report Type: 
  Country: None (occurrence: None)
  Receive Date: 20090326
  Receipt Date: 20090326
  Transmission Date: 20090719
  Serious: Yes (Other)
  Sender: FDA-Public Use
  Company Number: None

PATIENT
  Age: 10 Year
  Sex: Male
  Weight: 34.4734 kg

DRUGS (1)
  1. SINGULAIR [Suspect]
     Indication: SEASONAL ALLERGY
     Dosage: 1 CHEWABLE 1 ONCE A DAY
     Dates: start: 20090315, end: 20090325

REACTIONS (2)
  - ABDOMINAL PAIN [None]
  - FEAR [None]
